FAERS Safety Report 9934734 (Version 2)
Quarter: 2014Q1

REPORT INFORMATION
  Report Type: Spontaneous
  Country: US (occurrence: US)
  Receive Date: 20140228
  Receipt Date: 20140228
  Transmission Date: 20141002
  Serious: Yes (Hospitalization)
  Sender: FDA-Public Use
  Company Number: US-GLAXOSMITHKLINE-A0763019A

PATIENT
  Sex: Female

DRUGS (11)
  1. VENTOLIN [Suspect]
     Indication: ASTHMA
     Dosage: 1PUFF AS REQUIRED
     Route: 055
  2. ADVAIR HFA [Suspect]
     Indication: ASTHMA
     Dosage: 1PUFF TWICE PER DAY
     Route: 055
     Dates: start: 2001, end: 2001
  3. XOPENEX [Concomitant]
  4. MULTIVITAMIN [Concomitant]
  5. VITAMIN D [Concomitant]
  6. CARDIZEM [Concomitant]
  7. VITAMIN B [Concomitant]
  8. TUMERIC [Concomitant]
  9. PULMICORT [Concomitant]
  10. CLONOPIN [Concomitant]
  11. UNKNOWN MEDICATION [Concomitant]

REACTIONS (10)
  - Throat tightness [Unknown]
  - Cough [Unknown]
  - Palpitations [Recovering/Resolving]
  - Conduction disorder [Recovering/Resolving]
  - Heart rate increased [Recovering/Resolving]
  - Cardiac ablation [Recovering/Resolving]
  - Throat irritation [Recovered/Resolved]
  - Asthma [Recovering/Resolving]
  - Presyncope [Recovering/Resolving]
  - Arrhythmia [Recovering/Resolving]
